FAERS Safety Report 8231225-5 (Version None)
Quarter: 2012Q1

REPORT INFORMATION
  Report Type: 
  Country: None (occurrence: None)
  Receive Date: 20120320
  Receipt Date: 20120308
  Transmission Date: 20120608
  Serious: Yes (Hospitalization)
  Sender: FDA-Public Use
  Company Number: DKLU1077500

PATIENT
  Age: 13 Year
  Sex: Female

DRUGS (3)
  1. ZONEGRAN [Concomitant]
  2. SABRIL [Suspect]
     Indication: EPILEPSY
     Dosage: 750 MG MILLIGRAM(S), 2 IN 1 D, ORAL
     Route: 048
     Dates: start: 20110513
  3. DEPAKOTE [Concomitant]

REACTIONS (1)
  - SURGERY [None]
